FAERS Safety Report 10086902 (Version 1)
Quarter: 2014Q2

REPORT INFORMATION
  Report Type: Report from Study
  Country: DE (occurrence: DE)
  Receive Date: 20140418
  Receipt Date: 20140418
  Transmission Date: 20141212
  Serious: Yes (Other)
  Sender: FDA-Public Use
  Company Number: PHHY2014DE044017

PATIENT
  Age: 65 Year
  Sex: Male

DRUGS (13)
  1. IRINOTECAN [Suspect]
     Indication: COLORECTAL CANCER METASTATIC
     Dosage: 165 MG, 1 IN 2 WK
     Route: 042
     Dates: start: 20091030, end: 20091228
  2. IRINOTECAN [Suspect]
     Route: 042
     Dates: start: 20100115
  3. 5-FLUOROURACIL [Suspect]
     Indication: COLORECTAL CANCER METASTATIC
     Dosage: 3200 MG, 1 IN 2  WK
     Dates: start: 20091030, end: 20091228
  4. 5-FLUOROURACIL [Suspect]
     Dates: start: 20100115
  5. OXALIPLATIN [Suspect]
     Indication: COLORECTAL CANCER METASTATIC
     Dosage: 85 MG, 1 IN 2 WK
     Route: 042
     Dates: start: 20091030, end: 20091228
  6. OXALIPLATIN [Suspect]
     Route: 042
     Dates: start: 20100115
  7. FOLINIC ACID [Suspect]
     Indication: COLORECTAL CANCER METASTATIC
     Dosage: 200 MG, 1 IN 2 WK
     Route: 042
     Dates: start: 20091030, end: 20091228
  8. FOLINIC ACID [Suspect]
     Route: 042
     Dates: start: 20100115
  9. BEVACIZUMAB [Suspect]
     Indication: COLORECTAL CANCER METASTATIC
     Dosage: 400 MG, UNK
     Route: 042
     Dates: start: 20091030, end: 20091228
  10. BEVACIZUMAB [Suspect]
     Dosage: 400 MG, UNK
     Route: 042
     Dates: end: 20100409
  11. BEVACIZUMAB [Suspect]
     Route: 042
  12. METOPROLOL [Concomitant]
     Dosage: 95 MG, UNK
     Dates: start: 20091027
  13. ACETYLSALICYLIC ACID [Concomitant]
     Dosage: 100 MG, UNK
     Dates: start: 20091027

REACTIONS (1)
  - Diarrhoea [Recovered/Resolved]
